FAERS Safety Report 6725940-X (Version None)
Quarter: 2010Q2

REPORT INFORMATION
  Report Type: 
  Country: None (occurrence: None)
  Receive Date: 20100512
  Receipt Date: 20100426
  Transmission Date: 20101027
  Serious: Yes (Hospitalization)
  Sender: FDA-Public Use
  Company Number: CTI_01186_2010

PATIENT
  Sex: Female

DRUGS (2)
  1. SPECTRACEF [Suspect]
     Indication: NASOPHARYNGITIS
     Dosage: (100 MG ORAL)
     Route: 048
     Dates: start: 20100413, end: 20100413
  2. SPECTRACEF [Suspect]
     Indication: PHARYNGITIS
     Dosage: (100 MG ORAL)
     Route: 048
     Dates: start: 20100413, end: 20100413

REACTIONS (4)
  - ANAPHYLACTIC REACTION [None]
  - MALAISE [None]
  - PALLOR [None]
  - URTICARIA [None]
